FAERS Safety Report 5694623-X (Version None)
Quarter: 2008Q2

REPORT INFORMATION
  Report Type: 
  Country: None (occurrence: None)
  Receive Date: 20080404
  Receipt Date: 20080403
  Transmission Date: 20081010
  Serious: Yes (Other)
  Sender: FDA-Public Use
  Company Number: A0717736A

PATIENT
  Age: 19 Year
  Sex: Female

DRUGS (1)
  1. ALLI [Suspect]
     Indication: WEIGHT LOSS DIET
     Route: 048

REACTIONS (4)
  - ANAEMIA [None]
  - BINGE EATING [None]
  - WEIGHT FLUCTUATION [None]
  - WEIGHT INCREASED [None]
